FAERS Safety Report 25045526 (Version 4)
Quarter: 2025Q3

REPORT INFORMATION
  Report Type: Spontaneous
  Country: EU (occurrence: EU)
  Receive Date: 20250306
  Receipt Date: 20250709
  Transmission Date: 20251020
  Serious: Yes (Hospitalization)
  Sender: REGENERON
  Company Number: EU-BAYER-2025A027484

PATIENT
  Age: 33 Year
  Sex: Female

DRUGS (4)
  1. EYLEA [Suspect]
     Active Substance: AFLIBERCEPT
     Indication: Diabetic retinal oedema
     Route: 031
     Dates: start: 20210427
  2. EYLEA [Suspect]
     Active Substance: AFLIBERCEPT
     Dates: start: 20250127, end: 20250127
  3. EYLEA [Suspect]
     Active Substance: AFLIBERCEPT
     Dates: start: 20250408, end: 20250408
  4. FIASP [Concomitant]
     Active Substance: INSULIN ASPART
     Indication: Diabetes mellitus
     Dates: start: 200301

REACTIONS (9)
  - Blindness [Not Recovered/Not Resolved]
  - Visual field defect [Recovering/Resolving]
  - Visual impairment [Not Recovered/Not Resolved]
  - Eye disorder [Not Recovered/Not Resolved]
  - Xanthopsia [Unknown]
  - Glare [Unknown]
  - Photophobia [Unknown]
  - Injection site haemorrhage [Unknown]
  - Inappropriate schedule of product administration [Unknown]

NARRATIVE: CASE EVENT DATE: 20250127
